FAERS Safety Report 7997552-1 (Version None)
Quarter: 2011Q4

REPORT INFORMATION
  Report Type: 
  Country: None (occurrence: None)
  Receive Date: 20111221
  Receipt Date: 20111212
  Transmission Date: 20120403
  Serious: Yes (Other)
  Sender: FDA-Public Use
  Company Number: US-AMGEN-USASP2011061704

PATIENT
  Age: 67 Year
  Sex: Male
  Weight: 86 kg

DRUGS (20)
  1. COZAAR [Concomitant]
     Dosage: UNK
     Dates: start: 20110401
  2. EPOGEN [Suspect]
     Indication: ANAEMIA
     Dosage: 22000 IU, 3 TIMES/WK
  3. ACTOS [Concomitant]
     Dosage: UNK
     Dates: start: 20110401
  4. PREDNISONE TAB [Concomitant]
  5. FOSRENOL [Concomitant]
     Dosage: UNK
     Dates: start: 20110401
  6. MOTRIN [Concomitant]
     Dosage: UNK
     Dates: start: 20110401
  7. ARANESP [Suspect]
     Indication: RENAL FAILURE CHRONIC
     Dosage: UNK
     Dates: end: 20110426
  8. SENSIPAR [Concomitant]
     Indication: PRODUCT USED FOR UNKNOWN INDICATION
     Dosage: UNK
  9. SIMVASTATIN [Concomitant]
  10. VERAPAMIL [Concomitant]
     Dosage: UNK
     Dates: start: 20110401
  11. LIPITOR [Concomitant]
     Dosage: UNK
     Dates: start: 20110401
  12. EPOGEN [Suspect]
     Indication: RENAL FAILURE CHRONIC
     Dosage: 16500 IU, 3 TIMES/WK
     Dates: start: 20111001
  13. EPOGEN [Suspect]
     Dosage: 22000 IU, Q3WK
     Dates: start: 20110429
  14. COUMADIN [Concomitant]
     Dosage: UNK
     Dates: start: 20110401
  15. NEXIUM [Concomitant]
     Dosage: UNK
     Dates: start: 20110401
  16. LASIX [Concomitant]
     Dosage: UNK
     Dates: start: 20110401
  17. FLOMAX [Concomitant]
     Dosage: UNK
     Dates: start: 20110401
  18. WARFARIN SODIUM [Concomitant]
     Dosage: UNK
     Dates: start: 20110401
  19. EPOGEN [Suspect]
     Indication: DIALYSIS
     Dosage: 17600 IU, 3 TIMES/WK
     Dates: start: 20111001
  20. VITAMIN D [Concomitant]

REACTIONS (4)
  - APLASIA PURE RED CELL [None]
  - DRUG INEFFECTIVE [None]
  - RENAL FAILURE CHRONIC [None]
  - ANAEMIA [None]
